FAERS Safety Report 8081945-0 (Version None)
Quarter: 2012Q1

REPORT INFORMATION
  Report Type: 
  Country: None (occurrence: None)
  Receive Date: 20120130
  Receipt Date: 20110505
  Transmission Date: 20120608
  Serious: No
  Sender: FDA-Public Use
  Company Number: US-ABBOTT-11P-163-0723667-00

PATIENT
  Sex: Male

DRUGS (1)
  1. LUPRON DEPOT [Suspect]
     Indication: PROSTATE CANCER
     Route: 058

REACTIONS (1)
  - INCORRECT ROUTE OF DRUG ADMINISTRATION [None]
